FAERS Safety Report 20103253 (Version 1)
Quarter: 2021Q4

REPORT INFORMATION
  Report Type: Spontaneous
  Country: JP (occurrence: None)
  Receive Date: 20211123
  Receipt Date: 20211123
  Transmission Date: 20220303
  Serious: Yes (Other)
  Sender: FDA-Public Use
  Company Number: 2021A448261

PATIENT
  Age: 56 Year
  Sex: Female

DRUGS (1)
  1. FASENRA [Suspect]
     Active Substance: BENRALIZUMAB
     Indication: Asthma
     Route: 058
     Dates: start: 20210515

REACTIONS (5)
  - Eosinophilic granulomatosis with polyangiitis [Recovering/Resolving]
  - Rash pruritic [Recovering/Resolving]
  - Pyrexia [Recovering/Resolving]
  - Erythema nodosum [Unknown]
  - Lymphadenopathy [Unknown]

NARRATIVE: CASE EVENT DATE: 20210515
